FAERS Safety Report 24238614 (Version 1)
Quarter: 2024Q3

REPORT INFORMATION
  Report Type: Spontaneous
  Country: US (occurrence: None)
  Receive Date: 20240821
  Receipt Date: 20240821
  Transmission Date: 20241017
  Serious: No
  Sender: Public
  Company Number: None

PATIENT
  Age: 73 Year
  Sex: Female
  Weight: 90 kg

DRUGS (11)
  1. VABYSMO [Suspect]
     Active Substance: FARICIMAB\FARICIMAB-SVOA
     Dates: start: 20240814
  2. FLECAINIDE [Concomitant]
     Active Substance: FLECAINIDE
  3. METOPROLOL SUCCINATE [Concomitant]
     Active Substance: METOPROLOL SUCCINATE
  4. LISINOPRIL [Concomitant]
     Active Substance: LISINOPRIL
  5. OLMESARTAN MEDOXOMIL [Concomitant]
     Active Substance: OLMESARTAN MEDOXOMIL
  6. XARELTO [Concomitant]
     Active Substance: RIVAROXABAN
  7. LEVOTHYROXINE [Concomitant]
     Active Substance: LEVOTHYROXINE\LEVOTHYROXINE SODIUM
  8. SPIRIVA RESPIMAT [Concomitant]
     Active Substance: TIOTROPIUM BROMIDE
  9. LevobuterolHFA [Concomitant]
  10. Tylenol Arthriis [Concomitant]
  11. CYCLOBENZAPRINE [Concomitant]
     Active Substance: CYCLOBENZAPRINE

REACTIONS (5)
  - Micturition urgency [None]
  - Pollakiuria [None]
  - Bladder pain [None]
  - Blood pressure abnormal [None]
  - Therapy change [None]

NARRATIVE: CASE EVENT DATE: 20240815
